FAERS Safety Report 7931655-2 (Version None)
Quarter: 2011Q4

REPORT INFORMATION
  Report Type: 
  Country: None (occurrence: None)
  Receive Date: 20111121
  Receipt Date: 20111114
  Transmission Date: 20120403
  Serious: Yes (Other)
  Sender: FDA-Public Use
  Company Number: PHEH2011US07837

PATIENT
  Sex: Female

DRUGS (7)
  1. STALEVO 100 [Suspect]
     Dosage: 75MG AT 0600, 1300, 2000, 0930 AND 1630
     Route: 048
  2. IBUPROFEN (ADVIL) [Concomitant]
     Dosage: UNK UKN, UNK
  3. PROPRANOLOL [Concomitant]
     Dosage: 80 MG, QD
  4. HYDROCHLOROTHIAZIDE [Concomitant]
     Dosage: 12.5 MG, QD
  5. STALEVO 100 [Suspect]
     Indication: PARKINSON'S DISEASE
     Dosage: 100 MG, TID
     Route: 048
  6. REQUIP XL [Concomitant]
     Indication: PARKINSON'S DISEASE
     Dosage: 8 MG, BID
  7. SELEGILINE [Concomitant]
     Dosage: 5 MG

REACTIONS (4)
  - HALLUCINATION, VISUAL [None]
  - DRUG EFFECT DECREASED [None]
  - GENERAL PHYSICAL HEALTH DETERIORATION [None]
  - FREEZING PHENOMENON [None]
